FAERS Safety Report 11432368 (Version 1)
Quarter: 2015Q3

REPORT INFORMATION
  Report Type: Spontaneous
  Country: US (occurrence: US)
  Receive Date: 20150828
  Receipt Date: 20150828
  Transmission Date: 20151125
  Serious: Yes (Other)
  Sender: FDA-Public Use
  Company Number: US-MYLANLABS-2015M1028878

PATIENT

DRUGS (1)
  1. LEVOTHYROXINE. [Suspect]
     Active Substance: LEVOTHYROXINE
     Dosage: UNK

REACTIONS (6)
  - Toxicity to various agents [Unknown]
  - Paralysis [Unknown]
  - Chest pain [Unknown]
  - Nervousness [Unknown]
  - Palpitations [Unknown]
  - Emotional distress [Unknown]
